FAERS Safety Report 6180368-9 (Version None)
Quarter: 2009Q2

REPORT INFORMATION
  Report Type: 
  Country: None (occurrence: None)
  Receive Date: 20090504
  Receipt Date: 20090504
  Transmission Date: 20091009
  Serious: Yes (Death)
  Sender: FDA-Public Use
  Company Number: None

PATIENT
  Sex: Female
  Weight: 52.9 kg

DRUGS (4)
  1. OLANZAPINE [Suspect]
     Indication: ABNORMAL BEHAVIOUR
     Dosage: AS ABOVE
     Dates: start: 20090128
  2. OLANZAPINE [Suspect]
     Indication: DEMENTIA
     Dosage: AS ABOVE
     Dates: start: 20090128
  3. SEROQUEL [Suspect]
     Dosage: AS ABOVE
     Dates: start: 20071031, end: 20090128
  4. REFER TO SAE #079 FOR DETAILS [Concomitant]

REACTIONS (1)
  - DEATH [None]
